FAERS Safety Report 8077662-3 (Version None)
Quarter: 2012Q1

REPORT INFORMATION
  Report Type: 
  Country: None (occurrence: None)
  Receive Date: 20120127
  Receipt Date: 20120113
  Transmission Date: 20120608
  Serious: Yes (Hospitalization)
  Sender: FDA-Public Use
  Company Number: TR-MEDIMMUNE-MEDI-0014582

PATIENT
  Sex: Male
  Weight: 5.5 kg

DRUGS (2)
  1. METAIL [Concomitant]
  2. SYNAGIS [Suspect]
     Route: 030
     Dates: start: 20111124, end: 20111124

REACTIONS (4)
  - FEBRILE CONVULSION [None]
  - CHILLS [None]
  - PYREXIA [None]
  - VOMITING [None]
